FAERS Safety Report 7091333-1 (Version None)
Quarter: 2010Q4

REPORT INFORMATION
  Report Type: 
  Country: None (occurrence: None)
  Receive Date: 20101109
  Receipt Date: 20101104
  Transmission Date: 20110411
  Serious: Yes (Hospitalization)
  Sender: FDA-Public Use
  Company Number: A0756861A

PATIENT
  Age: 49 Year
  Sex: Male
  Weight: 90 kg

DRUGS (10)
  1. AVANDIA [Suspect]
     Dosage: 4MG PER DAY
     Route: 048
     Dates: start: 20061006, end: 20070417
  2. AVANDARYL [Suspect]
     Indication: DIABETES MELLITUS
     Route: 048
  3. LIPITOR [Concomitant]
  4. INSULIN [Concomitant]
  5. AMARYL [Concomitant]
  6. PROTONIX [Concomitant]
  7. CELEBREX [Concomitant]
  8. CYMBALTA [Concomitant]
  9. VICODIN [Concomitant]
  10. LUNESTA [Concomitant]

REACTIONS (4)
  - CARDIAC FAILURE CONGESTIVE [None]
  - CORONARY ARTERY DISEASE [None]
  - ISCHAEMIC CARDIOMYOPATHY [None]
  - MYOCARDIAL INFARCTION [None]
